FAERS Safety Report 13305958 (Version 4)
Quarter: 2017Q2

REPORT INFORMATION
  Report Type: Report from Study
  Country: US (occurrence: US)
  Receive Date: 20170308
  Receipt Date: 20170508
  Transmission Date: 20170830
  Serious: Yes (Other)
  Sender: FDA-Public Use
  Company Number: US-JNJFOC-20170222836

PATIENT
  Age: 58 Year
  Sex: Female

DRUGS (8)
  1. PREDNISOLONE. [Concomitant]
     Active Substance: PREDNISOLONE
  2. CYCLOPENTOLATE. [Concomitant]
     Active Substance: CYCLOPENTOLATE
     Route: 047
  3. TRAMADOL. [Concomitant]
     Active Substance: TRAMADOL
  4. IMBRUVICA [Suspect]
     Active Substance: IBRUTINIB
     Indication: WALDENSTROM^S MACROGLOBULINAEMIA
     Route: 048
     Dates: start: 20170215
  5. PROVENTIL [Concomitant]
     Active Substance: ALBUTEROL
     Dosage: 2 PUFF, EVERY 4 HOURS
  6. NYSTATIN. [Concomitant]
     Active Substance: NYSTATIN
  7. POTASSIUM [Concomitant]
     Active Substance: POTASSIUM
  8. LORAZEPAM. [Concomitant]
     Active Substance: LORAZEPAM
     Dosage: UNK, ONCE OR TWICE DAILY

REACTIONS (12)
  - Night sweats [Recovered/Resolved]
  - Body temperature increased [Recovered/Resolved]
  - Dermatitis contact [Recovering/Resolving]
  - Nausea [Not Recovered/Not Resolved]
  - Food aversion [Recovered/Resolved]
  - Dry skin [Unknown]
  - Fatigue [Not Recovered/Not Resolved]
  - Hypotension [Recovered/Resolved]
  - Uveitis [Recovered/Resolved]
  - Dizziness [Not Recovered/Not Resolved]
  - Diarrhoea [Recovered/Resolved]
  - Cough [Not Recovered/Not Resolved]

NARRATIVE: CASE EVENT DATE: 201702
